FAERS Safety Report 4930039-9 (Version None)
Quarter: 2006Q1

REPORT INFORMATION
  Report Type: 
  Country: None (occurrence: None)
  Receive Date: 20060228
  Receipt Date: 20060228
  Transmission Date: 20060701
  Serious: Yes (Other)
  Sender: FDA-Public Use
  Company Number: None

PATIENT
  Sex: Male
  Weight: 72.5755 kg

DRUGS (1)
  1. GAMUNEX [Suspect]
     Dosage: 30 GM EVERY 3 WEEKS IV
     Route: 042
     Dates: start: 20041110

REACTIONS (2)
  - HEPATITIS B [None]
  - LIVER FUNCTION TEST ABNORMAL [None]
